FAERS Safety Report 7515338-9 (Version None)
Quarter: 2011Q2

REPORT INFORMATION
  Report Type: 
  Country: None (occurrence: None)
  Receive Date: 20110601
  Receipt Date: 20100622
  Transmission Date: 20111010
  Serious: No
  Sender: FDA-Public Use
  Company Number: US-PFIZER INC-2010052578

PATIENT
  Sex: Female

DRUGS (7)
  1. CLONIDINE [Concomitant]
     Dosage: 0.2 MG, 2X/DAY
  2. CALCIUM WITH VITAMIN D [Concomitant]
     Dosage: UNK
  3. CHANTIX [Suspect]
     Indication: TOBACCO ABUSE
     Dosage: UNK
     Dates: start: 20100419, end: 20100611
  4. VITAMIN E [Concomitant]
     Dosage: UNK
  5. OMEPRAZOLE [Concomitant]
     Dosage: UNK
  6. ENALAPRIL [Concomitant]
     Dosage: UNK
  7. ULTRAM [Concomitant]
     Dosage: 50 MG, 4X/DAY AS NEEDED

REACTIONS (4)
  - ABDOMINAL DISCOMFORT [None]
  - MYALGIA [None]
  - VOMITING [None]
  - PAIN [None]
